FAERS Safety Report 9731724 (Version 5)
Quarter: 2018Q3

REPORT INFORMATION
  Report Type: Spontaneous
  Country: JP (occurrence: JP)
  Receive Date: 20131205
  Receipt Date: 20180807
  Transmission Date: 20181010
  Serious: Yes (Death, Other)
  Sender: FDA-Public Use
  Company Number: JP-ROCHE-1312439

PATIENT
  Age: 80 Year
  Sex: Male

DRUGS (12)
  1. REBAMIPIDE [Concomitant]
     Active Substance: REBAMIPIDE
     Route: 065
     Dates: start: 20130227
  2. SPIRIVA [Concomitant]
     Active Substance: TIOTROPIUM BROMIDE MONOHYDRATE
     Route: 065
     Dates: start: 20060118
  3. DIGOSIN [Concomitant]
     Active Substance: DIGOXIN
  4. HALFDIGOXIN KY [Concomitant]
     Route: 065
     Dates: start: 20070808
  5. PARIET [Concomitant]
     Active Substance: RABEPRAZOLE SODIUM
     Route: 065
     Dates: start: 20130227
  6. LUCENTIS [Suspect]
     Active Substance: RANIBIZUMAB
     Indication: AGE-RELATED MACULAR DEGENERATION
     Route: 050
     Dates: start: 20130827, end: 20130827
  7. WARFARIN [Concomitant]
     Active Substance: WARFARIN
     Route: 065
     Dates: start: 20070419
  8. HOKUNALIN [Concomitant]
     Active Substance: TULOBUTEROL
     Route: 065
     Dates: start: 20041112
  9. LUCENTIS [Suspect]
     Active Substance: RANIBIZUMAB
     Indication: MACULAR OEDEMA
  10. LUCENTIS [Suspect]
     Active Substance: RANIBIZUMAB
     Indication: RETINAL VEIN OCCLUSION
  11. VASOLAN [Concomitant]
     Active Substance: VERAPAMIL HYDROCHLORIDE
     Route: 065
     Dates: start: 20070320
  12. KIPRES [Concomitant]
     Active Substance: MONTELUKAST SODIUM
     Route: 065
     Dates: start: 20041119

REACTIONS (14)
  - Blood pressure decreased [Unknown]
  - Age-related macular degeneration [Unknown]
  - Heart rate decreased [Unknown]
  - Cardiac failure [Fatal]
  - Dehydration [Unknown]
  - Myocardial infarction [Fatal]
  - Retinal injury [Unknown]
  - Blood creatinine increased [Unknown]
  - Gait disturbance [Unknown]
  - Decreased appetite [Unknown]
  - Therapy non-responder [Unknown]
  - Blood urea increased [Unknown]
  - Dizziness [Unknown]
  - Visual acuity reduced [Unknown]

NARRATIVE: CASE EVENT DATE: 20130907
